FAERS Safety Report 9377404 (Version 1)
Quarter: 2013Q3

REPORT INFORMATION
  Report Type: Report from Study
  Country: FR (occurrence: FR)
  Receive Date: 20130701
  Receipt Date: 20130701
  Transmission Date: 20140515
  Serious: Yes (Hospitalization)
  Sender: FDA-Public Use
  Company Number: FR-ROCHE-1242705

PATIENT
  Age: 39 Year
  Sex: Female
  Weight: 70 kg

DRUGS (49)
  1. TOCILIZUMAB [Suspect]
     Indication: RHEUMATOID ARTHRITIS
     Dosage: DOSE : 560 MG
     Route: 041
     Dates: start: 20110801
  2. TOCILIZUMAB [Suspect]
     Route: 041
     Dates: start: 20110901
  3. TOCILIZUMAB [Suspect]
     Route: 041
     Dates: start: 20110929
  4. TOCILIZUMAB [Suspect]
     Route: 041
     Dates: start: 20111027
  5. TOCILIZUMAB [Suspect]
     Route: 041
     Dates: start: 20111201
  6. TOCILIZUMAB [Suspect]
     Route: 041
     Dates: start: 20120103
  7. TOCILIZUMAB [Suspect]
     Route: 041
     Dates: start: 20120207
  8. TOCILIZUMAB [Suspect]
     Route: 041
     Dates: start: 20120320
  9. TOCILIZUMAB [Suspect]
     Route: 041
     Dates: start: 20120417
  10. TOCILIZUMAB [Suspect]
     Route: 041
     Dates: start: 20120515
  11. TOCILIZUMAB [Suspect]
     Route: 041
     Dates: start: 20120717
  12. TOCILIZUMAB [Suspect]
     Route: 041
     Dates: start: 20120904
  13. TOCILIZUMAB [Suspect]
     Route: 041
     Dates: start: 20121002
  14. TOCILIZUMAB [Suspect]
     Route: 041
     Dates: start: 20121106
  15. TOCILIZUMAB [Suspect]
     Route: 041
     Dates: start: 20121206
  16. TOCILIZUMAB [Suspect]
     Route: 041
     Dates: start: 20130204
  17. CORTANCYL [Concomitant]
     Route: 065
     Dates: start: 20110801
  18. CORTANCYL [Concomitant]
     Route: 065
     Dates: start: 20110901
  19. CORTANCYL [Concomitant]
     Route: 065
     Dates: start: 20110929
  20. CORTANCYL [Concomitant]
     Route: 065
     Dates: start: 20111027
  21. CORTANCYL [Concomitant]
     Route: 065
     Dates: start: 20111201
  22. CORTANCYL [Concomitant]
     Route: 065
     Dates: start: 20120103
  23. CORTANCYL [Concomitant]
     Route: 065
     Dates: start: 20120207
  24. CORTANCYL [Concomitant]
     Route: 065
     Dates: start: 20120320
  25. CORTANCYL [Concomitant]
     Route: 065
     Dates: start: 20120417
  26. CORTANCYL [Concomitant]
     Route: 065
     Dates: start: 20120515
  27. CORTANCYL [Concomitant]
     Route: 065
     Dates: start: 20120717
  28. CORTANCYL [Concomitant]
     Route: 065
     Dates: start: 20120904
  29. CORTANCYL [Concomitant]
     Route: 065
     Dates: start: 20121002
  30. CORTANCYL [Concomitant]
     Route: 065
     Dates: start: 20121106
  31. CORTANCYL [Concomitant]
     Route: 065
     Dates: start: 20121206
  32. CORTANCYL [Concomitant]
     Route: 065
     Dates: start: 20130204
  33. CORTANCYL [Concomitant]
     Route: 065
     Dates: start: 20130204
  34. IXPRIM [Concomitant]
     Dosage: 4/DAY
     Route: 065
     Dates: start: 20110901
  35. IXPRIM [Concomitant]
     Dosage: 4/DAY
     Route: 065
     Dates: start: 20110929
  36. IXPRIM [Concomitant]
     Dosage: 4/DAY
     Route: 065
     Dates: start: 20111027
  37. IXPRIM [Concomitant]
     Dosage: 4/DAY
     Route: 065
     Dates: start: 20111201
  38. IXPRIM [Concomitant]
     Dosage: 4/DAY
     Route: 065
     Dates: start: 20120103
  39. IXPRIM [Concomitant]
     Dosage: 4/DAY
     Route: 065
     Dates: start: 20120207
  40. IXPRIM [Concomitant]
     Dosage: 4/DAY
     Route: 065
     Dates: start: 20120320
  41. IXPRIM [Concomitant]
     Dosage: 4/DAY
     Route: 065
     Dates: start: 20120417
  42. IXPRIM [Concomitant]
     Dosage: 4/DAY
     Route: 065
     Dates: start: 20120515
  43. IXPRIM [Concomitant]
     Dosage: 4/DAY
     Route: 065
     Dates: start: 20120717
  44. IXPRIM [Concomitant]
     Dosage: 4/DAY
     Route: 065
     Dates: start: 20120904
  45. IXPRIM [Concomitant]
     Dosage: 4/DAY
     Route: 065
     Dates: start: 20121002
  46. IXPRIM [Concomitant]
     Dosage: 4/DAY
     Route: 065
     Dates: start: 20121106
  47. IXPRIM [Concomitant]
     Dosage: 4/DAY
     Route: 065
     Dates: start: 20121206
  48. IXPRIM [Concomitant]
     Dosage: 4/DAY
     Route: 065
     Dates: start: 20130204
  49. IXPRIM [Concomitant]
     Dosage: 4/DAY
     Route: 065

REACTIONS (4)
  - Tachycardia [Not Recovered/Not Resolved]
  - Abdominal pain [Recovered/Resolved]
  - Nausea [Recovered/Resolved]
  - Menstruation delayed [Recovered/Resolved]
